FAERS Safety Report 26150602 (Version 1)
Quarter: 2025Q4

REPORT INFORMATION
  Report Type: Spontaneous
  Country: US (occurrence: None)
  Receive Date: 20251211
  Receipt Date: 20251211
  Transmission Date: 20260118
  Serious: No
  Sender: FDA-CTU
  Company Number: None

PATIENT
  Age: 39 Year
  Sex: Female
  Weight: 65.25 kg

DRUGS (13)
  1. DISULFIRAM [Suspect]
     Active Substance: DISULFIRAM
     Indication: Alcohol abuse
  2. DISULFIRAM [Suspect]
     Active Substance: DISULFIRAM
     Indication: Bipolar I disorder
  3. LITHIUM CARBONATE [Suspect]
     Active Substance: LITHIUM CARBONATE
  4. Buproprion 300mg XL [Concomitant]
  5. CYPROHEPTADINE [Concomitant]
     Active Substance: CYPROHEPTADINE
  6. QUETIAPINE [Concomitant]
     Active Substance: QUETIAPINE
  7. Disalfuram [Concomitant]
  8. Diflonac Sodium [Concomitant]
  9. TYLENOL [Concomitant]
     Active Substance: ACETAMINOPHEN
  10. one a day womens vitamin [Concomitant]
  11. VITAMIN C [Concomitant]
     Active Substance: ASCORBIC ACID
  12. CALCIUM [Concomitant]
     Active Substance: CALCIUM
  13. triquetra L-Methylfolate 5-MTHF PLUS METHY B12 1MG DROPS 2 DROPS PER D [Concomitant]

REACTIONS (4)
  - Tinnitus [None]
  - Ear discomfort [None]
  - Confusional state [None]
  - Therapy cessation [None]

NARRATIVE: CASE EVENT DATE: 20250701
